FAERS Safety Report 13347986 (Version 1)
Quarter: 2017Q1

REPORT INFORMATION
  Report Type: Spontaneous
  Country: JP (occurrence: JP)
  Receive Date: 20170318
  Receipt Date: 20170318
  Transmission Date: 20170428
  Serious: Yes (Death, Life-Threatening, Hospitalization, Other)
  Sender: FDA-Public Use
  Company Number: JP-BRISTOL-MYERS SQUIBB COMPANY-BMS-2017-002172

PATIENT
  Age: 87 Year
  Sex: Male
  Weight: 40.5 kg

DRUGS (5)
  1. ELIQUIS [Suspect]
     Active Substance: APIXABAN
     Indication: CEREBROVASCULAR ACCIDENT PROPHYLAXIS
     Dosage: 2.5 MG, BID
     Route: 048
  2. TAKEPRON [Concomitant]
     Active Substance: LANSOPRAZOLE
     Indication: PRODUCT USED FOR UNKNOWN INDICATION
     Dosage: 15 MG, QD
     Route: 065
     Dates: start: 201510, end: 20161217
  3. GLUFAST [Concomitant]
     Active Substance: MITIGLINIDE
     Indication: PRODUCT USED FOR UNKNOWN INDICATION
     Dosage: 10 MG, QD
     Route: 048
     Dates: start: 20150909, end: 20161217
  4. MAINTATE [Concomitant]
     Active Substance: BISOPROLOL FUMARATE
     Indication: PRODUCT USED FOR UNKNOWN INDICATION
     Dosage: 2.5 MG, QD
     Route: 048
     Dates: start: 20150313, end: 20161217
  5. FEBURIC [Concomitant]
     Active Substance: FEBUXOSTAT
     Indication: PRODUCT USED FOR UNKNOWN INDICATION
     Dosage: 10 MG, QD
     Route: 048
     Dates: start: 201510, end: 20161217

REACTIONS (14)
  - Atrial fibrillation [Unknown]
  - Pulmonary alveolar haemorrhage [Fatal]
  - Depressed level of consciousness [Unknown]
  - Blood pressure decreased [Unknown]
  - Pyrexia [Unknown]
  - Drug eruption [Recovering/Resolving]
  - Endotracheal intubation [Unknown]
  - Aphonia [Unknown]
  - Pneumonia aspiration [Recovering/Resolving]
  - Mycobacterium tuberculosis complex test positive [Unknown]
  - Dysphagia [Unknown]
  - Cardiac failure [Unknown]
  - Pneumonia [Unknown]
  - Platelet count decreased [Unknown]

NARRATIVE: CASE EVENT DATE: 20161218
